FAERS Safety Report 4846416-0 (Version None)
Quarter: 2005Q4

REPORT INFORMATION
  Report Type: 
  Country: None (occurrence: None)
  Receive Date: 20051201
  Receipt Date: 20051117
  Transmission Date: 20060501
  Serious: Yes (Hospitalization)
  Sender: FDA-Public Use
  Company Number: 2005P1000512

PATIENT
  Age: 66 Year
  Sex: Male
  Weight: 90 kg

DRUGS (12)
  1. RETEPLASE (RETEPLASE) [Suspect]
     Indication: ACUTE MYOCARDIAL INFARCTION
     Dosage: IV
     Route: 042
     Dates: start: 20050425, end: 20050425
  2. ABCIXIMAB (ABCIXAMAB) [Suspect]
     Indication: ACUTE MYOCARDIAL INFARCTION
     Dosage: IV
     Route: 042
     Dates: start: 20050425, end: 20050425
  3. SIMVASTATIN [Concomitant]
  4. CLOPIDOGREL [Concomitant]
  5. BISOPROLOL FUMARATE [Concomitant]
  6. TRANDOLAPRIL [Concomitant]
  7. ASPIRIN [Concomitant]
  8. GLYCERYL TRINITRATE [Concomitant]
  9. GLIMEPIRIDE [Concomitant]
  10. METOPROLOL [Concomitant]
  11. ISOSORBIDE MONONITRATE [Concomitant]
  12. FLUTICASONE [Concomitant]

REACTIONS (5)
  - CORONARY ARTERY OCCLUSION [None]
  - CORONARY ARTERY REOCCLUSION [None]
  - CORONARY ARTERY STENOSIS [None]
  - MYOCARDIAL INFARCTION [None]
  - TROPONIN T INCREASED [None]
